FAERS Safety Report 21284085 (Version 1)
Quarter: 2022Q3

REPORT INFORMATION
  Report Type: Spontaneous
  Country: DK (occurrence: DK)
  Receive Date: 20220901
  Receipt Date: 20220901
  Transmission Date: 20221026
  Serious: Yes (Hospitalization, Other)
  Sender: FDA-Public Use
  Company Number: None

PATIENT
  Age: 59 Year
  Sex: Female

DRUGS (1)
  1. OPDIVO [Suspect]
     Active Substance: NIVOLUMAB
     Indication: Malignant melanoma
     Dosage: STRENGTH: UNKNOWN, DOSAGE IS GIVEN IN SERIES, 23-MAR-2020 AND 21-APR-2020
     Route: 065
     Dates: start: 20200225

REACTIONS (6)
  - Hyperthyroidism [Unknown]
  - Cough [Unknown]
  - Hepatitis [Unknown]
  - Arthralgia [Unknown]
  - Cholelithiasis [Unknown]
  - Lung disorder [Unknown]

NARRATIVE: CASE EVENT DATE: 20200101
